FAERS Safety Report 25868813 (Version 1)
Quarter: 2025Q4

REPORT INFORMATION
  Report Type: Spontaneous
  Country: US (occurrence: US)
  Receive Date: 20251001
  Receipt Date: 20251001
  Transmission Date: 20260118
  Serious: No
  Sender: ROCHE
  Company Number: US-ROCHE-10000394481

PATIENT
  Sex: Female
  Weight: 58.97 kg

DRUGS (1)
  1. ACTEMRA [Suspect]
     Active Substance: TOCILIZUMAB
     Indication: Rheumatoid arthritis
     Route: 065
     Dates: start: 20250303

REACTIONS (13)
  - Adverse drug reaction [Unknown]
  - Ulcer [Unknown]
  - Rash [Not Recovered/Not Resolved]
  - Skin ulcer [Unknown]
  - Skin exfoliation [Unknown]
  - Skin abrasion [Not Recovered/Not Resolved]
  - Infection [Unknown]
  - Cough [Not Recovered/Not Resolved]
  - Wound [Recovered/Resolved]
  - Fatigue [Unknown]
  - Asthenia [Unknown]
  - Burning sensation [Not Recovered/Not Resolved]
  - Fall [Unknown]
